FAERS Safety Report 8920290 (Version 3)
Quarter: 2014Q1

REPORT INFORMATION
  Report Type: Report from Study
  Country: JP (occurrence: JP)
  Receive Date: 20121122
  Receipt Date: 20140331
  Transmission Date: 20141002
  Serious: Yes (Life-Threatening, Hospitalization, Other)
  Sender: FDA-Public Use
  Company Number: JP-ROCHE-786379

PATIENT
  Age: 59 Year
  Sex: Female

DRUGS (39)
  1. TOCILIZUMAB [Suspect]
     Indication: CASTLEMAN^S DISEASE
     Route: 041
     Dates: start: 20101111, end: 20101111
  2. TOCILIZUMAB [Suspect]
     Indication: CASTLEMAN^S DISEASE
     Route: 041
     Dates: start: 20101213, end: 20110228
  3. TOCILIZUMAB [Suspect]
     Indication: CASTLEMAN^S DISEASE
     Route: 041
     Dates: start: 20110323, end: 20110323
  4. TOCILIZUMAB [Suspect]
     Indication: CASTLEMAN^S DISEASE
     Route: 041
     Dates: start: 20110407, end: 20110421
  5. TOCILIZUMAB [Suspect]
     Indication: CASTLEMAN^S DISEASE
     Route: 041
     Dates: start: 20110512, end: 20120816
  6. TOCILIZUMAB [Suspect]
     Indication: CASTLEMAN^S DISEASE
     Route: 041
     Dates: start: 20121006, end: 20130905
  7. TOCILIZUMAB [Suspect]
     Indication: CASTLEMAN^S DISEASE
     Route: 041
     Dates: start: 20130926, end: 20131017
  8. TOCILIZUMAB [Suspect]
     Indication: CASTLEMAN^S DISEASE
     Route: 041
  9. PREDNISOLONE [Suspect]
     Indication: CASTLEMAN^S DISEASE
     Route: 048
     Dates: start: 20101008, end: 20101114
  10. PREDNISOLONE [Suspect]
     Indication: CASTLEMAN^S DISEASE
     Route: 048
     Dates: start: 20101105, end: 20110403
  11. PREDNISOLONE [Suspect]
     Indication: CASTLEMAN^S DISEASE
     Route: 048
     Dates: start: 20110404, end: 20120408
  12. PREDNISOLONE [Suspect]
     Indication: CASTLEMAN^S DISEASE
     Route: 048
     Dates: start: 20120409, end: 20120829
  13. PREDNISOLONE [Suspect]
     Indication: CASTLEMAN^S DISEASE
     Route: 048
     Dates: start: 20120830, end: 20121118
  14. PREDNISOLONE [Suspect]
     Indication: CASTLEMAN^S DISEASE
     Route: 048
     Dates: start: 20121119, end: 20121216
  15. PREDNISOLONE [Suspect]
     Indication: CASTLEMAN^S DISEASE
     Route: 048
     Dates: start: 20121217, end: 20130120
  16. PREDNISOLONE [Suspect]
     Indication: CASTLEMAN^S DISEASE
     Route: 048
     Dates: start: 20130121, end: 20130217
  17. PREDNISOLONE [Suspect]
     Indication: CASTLEMAN^S DISEASE
     Route: 048
     Dates: start: 20130218, end: 20130609
  18. PREDNISOLONE [Suspect]
     Indication: CASTLEMAN^S DISEASE
     Route: 048
     Dates: start: 20130610
  19. NEORAL [Concomitant]
     Indication: GLOMERULONEPHRITIS
     Dosage: DOSE FORM: PERORAL AGENT
     Route: 048
     Dates: start: 20100614, end: 20100927
  20. NEORAL [Concomitant]
     Indication: GLOMERULONEPHRITIS
     Route: 048
     Dates: start: 20100928, end: 20101104
  21. NEORAL [Concomitant]
     Indication: GLOMERULONEPHRITIS
     Route: 048
     Dates: start: 20101129, end: 20110424
  22. NEORAL [Concomitant]
     Indication: GLOMERULONEPHRITIS
     Route: 048
     Dates: start: 20110425, end: 20110822
  23. BAKTAR [Concomitant]
     Indication: PROPHYLAXIS
     Route: 048
  24. AMLODIPINE [Concomitant]
     Indication: HYPERTENSION
     Route: 048
  25. ALLOPURINOL [Concomitant]
     Indication: HYPERURICAEMIA
     Route: 048
  26. ARCRANE [Concomitant]
     Route: 048
  27. PARIET [Concomitant]
     Indication: PROPHYLAXIS
     Route: 048
  28. NOVORAPID [Concomitant]
     Indication: DIABETES MELLITUS
     Dosage: FOUR UNITS OF MORNING, SIX UNITS OF DAYTIME, AND FOUR UNITS OF EVENING
     Route: 058
  29. OLMETEC [Concomitant]
     Indication: HYPERTENSION
     Route: 048
  30. URSO [Concomitant]
     Indication: HEPATITIS C
     Route: 048
  31. URSO [Concomitant]
     Indication: HEPATITIS C
     Route: 048
  32. ALENDRONATE [Concomitant]
     Indication: PROPHYLAXIS
     Route: 048
  33. ITRACONAZOLE [Concomitant]
     Indication: PROPHYLAXIS
     Route: 048
     Dates: start: 20100220
  34. SAXIZON [Concomitant]
     Indication: PROPHYLAXIS
     Route: 042
     Dates: start: 20121006, end: 20121006
  35. SAXIZON [Concomitant]
     Indication: PROPHYLAXIS
     Route: 042
     Dates: start: 20121018, end: 20121018
  36. SAXIZON [Concomitant]
     Indication: PROPHYLAXIS
     Dosage: TCZ ADMINISTERING DAY
     Route: 042
     Dates: start: 20121101, end: 20130418
  37. POLARAMINE [Concomitant]
     Indication: PROPHYLAXIS
     Route: 048
     Dates: start: 20121006, end: 20121006
  38. POLARAMINE [Concomitant]
     Indication: PROPHYLAXIS
     Route: 048
     Dates: start: 20121018, end: 20121018
  39. POLARAMINE [Concomitant]
     Indication: PROPHYLAXIS
     Dosage: TCZ ADMINISTERING DAY
     Route: 048
     Dates: start: 20121101

REACTIONS (8)
  - Blood pressure decreased [Recovered/Resolved]
  - Bradycardia [Recovered/Resolved]
  - Presyncope [Recovered/Resolved]
  - Urinary tract infection [Recovering/Resolving]
  - Hydronephrosis [Unknown]
  - Platelet count decreased [Recovering/Resolving]
  - Chills [Unknown]
  - Pyrexia [Unknown]
